FAERS Safety Report 24406812 (Version 1)
Quarter: 2024Q4

REPORT INFORMATION
  Report Type: Spontaneous
  Country: CN (occurrence: CN)
  Receive Date: 20241007
  Receipt Date: 20241007
  Transmission Date: 20250114
  Serious: Yes (Congenital Anomaly)
  Sender: GILEAD
  Company Number: CN-GILEAD-2024-0686336

PATIENT
  Sex: Male

DRUGS (3)
  1. BIKTARVY [Suspect]
     Active Substance: BICTEGRAVIR SODIUM\EMTRICITABINE\TENOFOVIR ALAFENAMIDE FUMARATE
     Indication: Penile pain
     Dosage: UNK UNK, QD
     Route: 048
     Dates: start: 20240531, end: 20240627
  2. BIKTARVY [Suspect]
     Active Substance: BICTEGRAVIR SODIUM\EMTRICITABINE\TENOFOVIR ALAFENAMIDE FUMARATE
     Indication: Urethral pain
  3. BIKTARVY [Suspect]
     Active Substance: BICTEGRAVIR SODIUM\EMTRICITABINE\TENOFOVIR ALAFENAMIDE FUMARATE
     Indication: Prophylaxis against HIV infection

REACTIONS (3)
  - Penile pain [Not Recovered/Not Resolved]
  - Albumin urine present [Unknown]
  - Off label use [Recovered/Resolved]
